FAERS Safety Report 15867535 (Version 3)
Quarter: 2019Q1

REPORT INFORMATION
  Report Type: Spontaneous
  Country: US (occurrence: US)
  Receive Date: 20190125
  Receipt Date: 20190325
  Transmission Date: 20190417
  Serious: No
  Sender: FDA-Public Use
  Company Number: US-PFIZER INC-2016423078

PATIENT
  Age: 48 Year
  Sex: Female

DRUGS (2)
  1. LYRICA [Suspect]
     Active Substance: PREGABALIN
     Dosage: 1 CAPSULE, DAILY
     Route: 048
     Dates: start: 20160901, end: 20170827
  2. LYRICA [Suspect]
     Active Substance: PREGABALIN
     Indication: FIBROMYALGIA
     Dosage: 1 CAPSULE AT BEDTIME
     Route: 048
     Dates: start: 20160901

REACTIONS (4)
  - Hypokinesia [Unknown]
  - Insomnia [Unknown]
  - Product use issue [Unknown]
  - Pain [Unknown]
